FAERS Safety Report 4569404-0 (Version None)
Quarter: 2005Q1

REPORT INFORMATION
  Report Type: 
  Country: None (occurrence: None)
  Receive Date: 20050203
  Receipt Date: 20041116
  Transmission Date: 20050727
  Serious: Yes (Hospitalization, Other)
  Sender: FDA-Public Use
  Company Number: FR-BRISTOL-MYERS SQUIBB COMPANY-12766143

PATIENT
  Age: 65 Year
  Sex: Female

DRUGS (3)
  1. BLEOMYCIN [Suspect]
     Indication: OVARIAN CANCER
     Dosage: START DATE:  03-MAY-2004, DAYS 1, 8 AND 15, 01-JUN-2004, 28-JUN-2004 AND 19-JUL-2004
     Route: 042
     Dates: start: 20040802, end: 20040802
  2. CISPLATIN [Suspect]
     Indication: OVARIAN CANCER
     Dosage: START DATE:  03-MAY-2004, DAYS 1 - 5
     Route: 042
     Dates: start: 20040723, end: 20040723
  3. VEPESID [Suspect]
     Indication: OVARIAN CANCER
     Dosage: START DATE:  03-MAY-2004, DAYS 1 - 5
     Route: 042
     Dates: start: 20040723, end: 20040723

REACTIONS (6)
  - COUGH [None]
  - DYSPNOEA [None]
  - LUNG DISORDER [None]
  - PLEURISY [None]
  - PNEUMONITIS [None]
  - PULMONARY FIBROSIS [None]
